FAERS Safety Report 8170036-6 (Version None)
Quarter: 2012Q1

REPORT INFORMATION
  Report Type: 
  Country: None (occurrence: None)
  Receive Date: 20120228
  Receipt Date: 20120222
  Transmission Date: 20120608
  Serious: Yes (Other)
  Sender: FDA-Public Use
  Company Number: US-BAYER-2012-017967

PATIENT
  Age: 21 Year
  Sex: Male
  Weight: 77 kg

DRUGS (3)
  1. ALEVE (CAPLET) [Suspect]
     Indication: PYREXIA
     Dosage: 2 DF, QD
     Route: 048
     Dates: start: 20120217, end: 20120221
  2. ALEVE (CAPLET) [Suspect]
     Indication: ARTHRALGIA
  3. CANNABIS [Concomitant]
     Dosage: UNK

REACTIONS (4)
  - HAEMATOCHEZIA [None]
  - PYREXIA [None]
  - ARTHRALGIA [None]
  - FAECES DISCOLOURED [None]
